FAERS Safety Report 8268683-6 (Version None)
Quarter: 2012Q2

REPORT INFORMATION
  Report Type: 
  Country: None (occurrence: None)
  Receive Date: 20120409
  Receipt Date: 20120406
  Transmission Date: 20120825
  Serious: No
  Sender: FDA-Public Use
  Company Number: US-PFIZER INC-2012087543

PATIENT
  Sex: Female
  Weight: 63.49 kg

DRUGS (3)
  1. ALBUTEROL [Concomitant]
     Indication: ASTHMA
     Dosage: TWO PUFFS AS NEEDED
  2. IBUPROFEN [Concomitant]
     Indication: PAIN
     Dosage: 800 MG, 2 TO 3 TIMES A DAY AS NEEDED
  3. CELEBREX [Suspect]
     Indication: ARTHRITIS
     Dosage: 25MG OR 50MG, DAILY
     Dates: start: 19990101

REACTIONS (3)
  - TACHYCARDIA [None]
  - CARDIAC DISORDER [None]
  - PALPITATIONS [None]
